FAERS Safety Report 9324865 (Version 1)
Quarter: 2013Q2

REPORT INFORMATION
  Report Type: Spontaneous
  Country: FR (occurrence: None)
  Receive Date: 20130529
  Receipt Date: 20130529
  Transmission Date: 20140414
  Serious: Yes (Hospitalization)
  Sender: FDA-Public Use
  Company Number: ENTC2013-0194

PATIENT
  Sex: Male

DRUGS (4)
  1. STALEVO (LEVODOPA, CARBIDOPA, ENTACAPONE) [Suspect]
  2. AZILECT [Concomitant]
  3. TEMESTA [Concomitant]
  4. CLOZAPINE [Concomitant]

REACTIONS (4)
  - Delirium [None]
  - Hallucination, auditory [None]
  - Discomfort [None]
  - Persecutory delusion [None]
